FAERS Safety Report 8981531 (Version 2)
Quarter: 2013Q1

REPORT INFORMATION
  Report Type: Spontaneous
  Country: US (occurrence: US)
  Receive Date: 20121221
  Receipt Date: 20130228
  Transmission Date: 20140127
  Serious: No
  Sender: FDA-Public Use
  Company Number: US-BAYER-2012-133543

PATIENT
  Age: 35 Year
  Sex: Male

DRUGS (1)
  1. GADAVIST [Suspect]
     Dosage: 6 ML, ONCE
     Route: 042

REACTIONS (3)
  - Urticaria [None]
  - Sneezing [None]
  - Pruritus [None]
